FAERS Safety Report 16376859 (Version 1)
Quarter: 2019Q2

REPORT INFORMATION
  Report Type: Spontaneous
  Country: US (occurrence: US)
  Receive Date: 20190531
  Receipt Date: 20190531
  Transmission Date: 20190711
  Serious: Yes (Other)
  Sender: FDA-Public Use
  Company Number: US-TEVA-2019-US-1058283

PATIENT
  Sex: Female

DRUGS (1)
  1. BACLOFEN. [Suspect]
     Active Substance: BACLOFEN
     Route: 065

REACTIONS (6)
  - Coma [Unknown]
  - Pelvic discomfort [Unknown]
  - Tendon rupture [Unknown]
  - Drug hypersensitivity [Unknown]
  - Apparent death [Unknown]
  - Back disorder [Unknown]
